FAERS Safety Report 6381994-4 (Version None)
Quarter: 2009Q3

REPORT INFORMATION
  Report Type: 
  Country: None (occurrence: None)
  Receive Date: 20090925
  Receipt Date: 20090917
  Transmission Date: 20100115
  Serious: Yes (Hospitalization)
  Sender: FDA-Public Use
  Company Number: WAES 0909USA02428

PATIENT
  Age: 71 Year
  Sex: Female
  Weight: 79.8331 kg

DRUGS (2)
  1. DEXAMETHASONE [Suspect]
     Indication: MULTIPLE MYELOMA
     Dosage: 40 MG/PO
     Route: 048
     Dates: start: 20090605
  2. VELCADE [Suspect]
     Indication: MULTIPLE MYELOMA
     Dosage: 1.2 MG/Q4W/IV
     Route: 042
     Dates: start: 20090605

REACTIONS (3)
  - BACTERIAL CULTURE POSITIVE [None]
  - HYPOPHAGIA [None]
  - URINARY TRACT INFECTION [None]
